FAERS Safety Report 7446130-1 (Version None)
Quarter: 2011Q2

REPORT INFORMATION
  Report Type: 
  Country: None (occurrence: None)
  Receive Date: 20110429
  Receipt Date: 20110422
  Transmission Date: 20111010
  Serious: Yes (Death)
  Sender: FDA-Public Use
  Company Number: A0924835A

PATIENT
  Age: 58 Year
  Sex: Male

DRUGS (4)
  1. CALCIUM [Concomitant]
  2. POTASSIUM [Concomitant]
  3. HYCAMTIN [Suspect]
     Dosage: 5MG SEE DOSAGE TEXT
     Route: 048
  4. PREVACID [Concomitant]

REACTIONS (1)
  - DEATH [None]
